FAERS Safety Report 8931922 (Version 1)
Quarter: 2012Q4

REPORT INFORMATION
  Report Type: 
  Country: MX (occurrence: MX)
  Receive Date: 20121128
  Receipt Date: 20121128
  Transmission Date: 20130627
  Serious: Yes (Hospitalization, Other)
  Sender: FDA-Public Use
  Company Number: MX-BAYER-2012-122284

PATIENT
  Age: 50 Year
  Sex: Female
  Weight: 72 kg

DRUGS (1)
  1. QLAIRA [Suspect]
     Indication: UTERINE BLEEDING
     Dosage: UNK UNK, QD
     Route: 048
     Dates: start: 201209, end: 20121114

REACTIONS (3)
  - Embolism [Unknown]
  - Off label use [None]
  - Pelvic fracture [Unknown]
